FAERS Safety Report 5921258-3 (Version None)
Quarter: 2008Q4

REPORT INFORMATION
  Report Type: 
  Country: None (occurrence: None)
  Receive Date: 20081014
  Receipt Date: 20081008
  Transmission Date: 20090506
  Serious: Yes (Death, Life-Threatening, Hospitalization)
  Sender: FDA-Public Use
  Company Number: 2008SP018677

PATIENT
  Age: 67 Year
  Sex: Male
  Weight: 75 kg

DRUGS (4)
  1. PEG-INTRON [Suspect]
     Indication: HEPATITIS C VIRUS TEST
     Dosage: 0.7 ML;QW;SC
     Route: 058
     Dates: start: 20080425, end: 20080528
  2. RIBAVIRIN [Suspect]
     Indication: HEPATITIS C VIRUS TEST
     Dosage: 1 GM;QD;PO
     Route: 048
     Dates: start: 20080502, end: 20080528
  3. TACROLIMUS [Concomitant]
  4. MOFETIL MICOFENOLATE [Concomitant]

REACTIONS (9)
  - CARDIAC FAILURE [None]
  - GENERALISED OEDEMA [None]
  - LEFT VENTRICULAR DYSFUNCTION [None]
  - MULTI-ORGAN FAILURE [None]
  - PLEURAL EFFUSION [None]
  - PULMONARY EMBOLISM [None]
  - PULMONARY HYPERTENSION [None]
  - RENAL FAILURE [None]
  - VASCULAR PSEUDOANEURYSM [None]
